FAERS Safety Report 18490701 (Version 2)
Quarter: 2020Q4

REPORT INFORMATION
  Report Type: Report from Study
  Country: FR (occurrence: FR)
  Receive Date: 20201111
  Receipt Date: 20201123
  Transmission Date: 20210114
  Serious: Yes (Death, Hospitalization)
  Sender: FDA-Public Use
  Company Number: FR-BAYER-2020-178613

PATIENT
  Age: 42 Year
  Sex: Male
  Weight: 56 kg

DRUGS (22)
  1. MORPHINE [Concomitant]
     Active Substance: MORPHINE
     Indication: GENERAL PHYSICAL HEALTH DETERIORATION
  2. RED BLOOD CELLS, CONCENTRATED [Concomitant]
     Active Substance: HUMAN RED BLOOD CELL
     Indication: PLATELET COUNT DECREASED
     Dosage: ONE PACK ADMINISTERED
     Dates: start: 20200827, end: 20200827
  3. RED BLOOD CELLS, CONCENTRATED [Concomitant]
     Active Substance: HUMAN RED BLOOD CELL
     Indication: ANAEMIA
     Dosage: THREE PACKS ADMINISTERED
     Dates: start: 20200828, end: 20200828
  4. RED BLOOD CELLS, CONCENTRATED [Concomitant]
     Active Substance: HUMAN RED BLOOD CELL
     Indication: ANAEMIA
     Dosage: ONE PACK ADMINISTERED
     Dates: start: 20200830, end: 20200830
  5. MIDAZOLAM. [Concomitant]
     Active Substance: MIDAZOLAM
     Indication: SEDATION
     Dosage: 1/H
     Route: 042
     Dates: start: 20200830
  6. NAPROXENE BAYER 220 MG [Concomitant]
     Active Substance: NAPROXEN
     Dosage: UNK
     Dates: start: 20200804
  7. REGORAFENIB. [Suspect]
     Active Substance: REGORAFENIB
     Indication: METASTASES TO BONE
  8. MACROGOL;POTASSIUM CHLORIDE;SODIUM BICARBONATE;SODIUM CHLORIDE [Concomitant]
     Active Substance: POLYETHYLENE GLYCOL\POTASSIUM CHLORIDE\SODIUM BICARBONATE\SODIUM CHLORIDE
     Indication: CONSTIPATION
     Dosage: 1 DAY
     Route: 048
     Dates: start: 20200824
  9. PLATELETS [Concomitant]
     Active Substance: HUMAN PLATELET, ALLOGENIC
     Indication: PLATELET COUNT DECREASED
  10. IRINOTECAN [Suspect]
     Active Substance: IRINOTECAN
     Indication: OESOPHAGEAL CANCER METASTATIC
     Dosage: 309.6 MG
     Route: 042
     Dates: start: 20200728, end: 20200728
  11. MAGNESIUM [Concomitant]
     Active Substance: MAGNESIUM
     Indication: MINERAL SUPPLEMENTATION
     Dosage: 100 MG DAY
     Route: 048
     Dates: start: 20200828
  12. TRANEXAMIC ACID. [Concomitant]
     Active Substance: TRANEXAMIC ACID
     Dosage: UNK
     Dates: start: 20200830
  13. METHYLPREDNISOLONE. [Concomitant]
     Active Substance: METHYLPREDNISOLONE
     Indication: PROPHYLAXIS
     Dosage: 100 MG DAY
     Route: 042
     Dates: start: 20200828
  14. PLITICAN [Concomitant]
     Active Substance: ALIZAPRIDE HYDROCHLORIDE
     Indication: PROPHYLAXIS OF NAUSEA AND VOMITING
     Dosage: PRN
     Route: 042
     Dates: start: 20200824
  15. DOLIPRANE [Concomitant]
     Active Substance: ACETAMINOPHEN
     Indication: PAIN
     Dosage: 500 MG (8/DAY)
     Route: 048
     Dates: start: 20200826
  16. MORPHINE [Concomitant]
     Active Substance: MORPHINE
     Indication: CHEST PAIN
  17. REGORAFENIB. [Suspect]
     Active Substance: REGORAFENIB
     Indication: OESOPHAGEAL CANCER METASTATIC
     Dosage: 160 MG, QD
     Route: 048
     Dates: start: 20200729, end: 20200804
  18. PANTOPRAZOLE [Concomitant]
     Active Substance: PANTOPRAZOLE
     Indication: ABDOMINAL PAIN UPPER
     Dosage: 200 MG DAY
     Route: 042
     Dates: start: 20200827
  19. ESOMEPRAZOLE. [Concomitant]
     Active Substance: ESOMEPRAZOLE MAGNESIUM
     Indication: ABDOMINAL PAIN UPPER
     Dosage: 1 DAY
     Route: 048
     Dates: start: 202008, end: 20200827
  20. PLATELETS [Concomitant]
     Active Substance: HUMAN PLATELET, ALLOGENIC
     Indication: HAEMOGLOBIN DECREASED
     Dosage: ONE PACK ADMINISTERED
     Dates: start: 20200830, end: 20200830
  21. RED BLOOD CELLS, CONCENTRATED [Concomitant]
     Active Substance: HUMAN RED BLOOD CELL
     Indication: ANAEMIA
     Dosage: TWO PACKS ADMINISTERED
     Dates: start: 20200812, end: 20200812
  22. RED BLOOD CELLS, CONCENTRATED [Concomitant]
     Active Substance: HUMAN RED BLOOD CELL
     Indication: HAEMOGLOBIN DECREASED
     Dosage: ONE PACK ADMINISTERED
     Dates: start: 20200824, end: 20200824

REACTIONS (6)
  - Melaena [None]
  - Oedema peripheral [None]
  - Pain in extremity [None]
  - Thrombotic microangiopathy [Fatal]
  - Pain [Not Recovered/Not Resolved]
  - General physical health deterioration [None]

NARRATIVE: CASE EVENT DATE: 20200824
